FAERS Safety Report 5534269-7 (Version None)
Quarter: 2007Q4

REPORT INFORMATION
  Report Type: 
  Country: None (occurrence: None)
  Receive Date: 20071205
  Receipt Date: 20071129
  Transmission Date: 20080405
  Serious: Yes (Hospitalization, Other)
  Sender: FDA-Public Use
  Company Number: US-ASTRAZENECA-2007UW23605

PATIENT
  Age: 54 Year
  Sex: Male
  Weight: 85.5 kg

DRUGS (13)
  1. CRESTOR [Suspect]
  2. PLAVIX [Concomitant]
  3. ASPIRIN [Concomitant]
  4. COREG [Concomitant]
  5. ANTARRA [Concomitant]
  6. LASIX [Concomitant]
  7. ATACAND [Concomitant]
  8. INSPIRA [Concomitant]
  9. NIASPAN [Concomitant]
  10. OMACOR [Concomitant]
  11. LOVAZA [Concomitant]
  12. TOPROL-XL [Concomitant]
  13. ISOSORBIDE DINITRATE [Concomitant]

REACTIONS (4)
  - BLOOD CREATINE PHOSPHOKINASE INCREASED [None]
  - MYALGIA [None]
  - MYOSITIS [None]
  - PYREXIA [None]
